FAERS Safety Report 17334954 (Version 2)
Quarter: 2020Q2

REPORT INFORMATION
  Report Type: Spontaneous
  Country: US (occurrence: US)
  Receive Date: 20200128
  Receipt Date: 20200403
  Transmission Date: 20200713
  Serious: No
  Sender: FDA-Public Use
  Company Number: US-BAUSCH-BL-2020-002166

PATIENT
  Age: 61 Year
  Sex: Female

DRUGS (1)
  1. LUMIFY [Suspect]
     Active Substance: BRIMONIDINE TARTRATE
     Indication: OCULAR HYPERAEMIA
     Dosage: INTRAOCULAR?ONLY USED ONCE
     Route: 047
     Dates: start: 20191231, end: 20191231

REACTIONS (8)
  - Dizziness [Recovered/Resolved]
  - Impaired driving ability [Recovered/Resolved]
  - Ocular discomfort [Recovered/Resolved]
  - Vomiting [Recovered/Resolved]
  - Impaired work ability [Recovered/Resolved]
  - Eye pain [Recovered/Resolved]
  - Disorientation [Recovered/Resolved]
  - Palpitations [Recovered/Resolved]

NARRATIVE: CASE EVENT DATE: 20191231
